FAERS Safety Report 19205456 (Version 7)
Quarter: 2022Q4

REPORT INFORMATION
  Report Type: Report from Study
  Country: FR (occurrence: FR)
  Receive Date: 20210503
  Receipt Date: 20221220
  Transmission Date: 20230113
  Serious: Yes (Other)
  Sender: FDA-Public Use
  Company Number: NVSC2021FR094195

PATIENT
  Age: 19 Year
  Sex: Female
  Weight: 48.8 kg

DRUGS (6)
  1. ALPELISIB [Suspect]
     Active Substance: ALPELISIB
     Indication: PIK3CA related overgrowth spectrum
     Dosage: 250 MG, QD
     Route: 048
     Dates: start: 20190507, end: 20210210
  2. ALPELISIB [Suspect]
     Active Substance: ALPELISIB
     Dosage: 250 MG, QD
     Route: 048
     Dates: start: 20210218
  3. ALPELISIB [Suspect]
     Active Substance: ALPELISIB
     Dosage: 250 MG, QD
     Route: 048
  4. ALPELISIB [Suspect]
     Active Substance: ALPELISIB
     Dosage: UNK, QD (HALF DOSE)
     Route: 048
     Dates: end: 202206
  5. TETRALYSAL [Concomitant]
     Indication: Acne
     Dosage: 300 MG, QD
     Route: 048
     Dates: start: 201907
  6. ETHINYL ESTRADIOL\LEVONORGESTREL [Concomitant]
     Active Substance: ETHINYL ESTRADIOL\LEVONORGESTREL
     Indication: Contraception
     Dosage: UNK UNK, QD
     Route: 048
     Dates: start: 20201028

REACTIONS (8)
  - Diarrhoea haemorrhagic [Recovered/Resolved]
  - Asthenia [Recovering/Resolving]
  - Mucous stools [Recovered/Resolved]
  - Haematochezia [Recovered/Resolved]
  - Abdominal pain [Recovered/Resolved]
  - Abdominal pain [Recovered/Resolved]
  - Diarrhoea [Recovered/Resolved]
  - Colitis [Unknown]

NARRATIVE: CASE EVENT DATE: 20210206
